FAERS Safety Report 14948307 (Version 1)
Quarter: 2018Q2

REPORT INFORMATION
  Report Type: Spontaneous
  Country: US (occurrence: US)
  Receive Date: 20180529
  Receipt Date: 20180529
  Transmission Date: 20180711
  Serious: Yes (Other)
  Sender: FDA-Public Use
  Company Number: US-NAPPMUNDI-USA-2018-0143717

PATIENT
  Sex: Female

DRUGS (1)
  1. BUPRENORPHINE (SIMILAR TO NDA 21-306) [Suspect]
     Active Substance: BUPRENORPHINE
     Indication: FOETAL EXPOSURE DURING PREGNANCY
     Dosage: UNK
     Route: 064

REACTIONS (4)
  - Poor feeding infant [Recovered/Resolved]
  - Foetal exposure during pregnancy [Unknown]
  - Crying [Unknown]
  - Poor weight gain neonatal [Recovered/Resolved]
